FAERS Safety Report 6652564-5 (Version None)
Quarter: 2010Q1

REPORT INFORMATION
  Report Type: 
  Country: None (occurrence: None)
  Receive Date: 20100325
  Receipt Date: 20100311
  Transmission Date: 20100710
  Serious: Yes (Other)
  Sender: FDA-Public Use
  Company Number: SE-MYLANLABS-2010S1004803

PATIENT
  Age: 69 Year
  Sex: Male

DRUGS (1)
  1. DICLOFENAC [Suspect]
     Indication: ARTHRITIS
     Dates: end: 20091006

REACTIONS (1)
  - DEEP VEIN THROMBOSIS [None]
